FAERS Safety Report 21423644 (Version 1)
Quarter: 2022Q4

REPORT INFORMATION
  Report Type: Spontaneous
  Country: US (occurrence: None)
  Receive Date: 20221007
  Receipt Date: 20221007
  Transmission Date: 20230112
  Serious: Yes (Disabling)
  Sender: FDA-Public Use
  Company Number: None

PATIENT
  Age: 31 Year
  Sex: Male
  Weight: 76.5 kg

DRUGS (2)
  1. GADAVIST [Suspect]
     Active Substance: GADOBUTROL
     Indication: Magnetic resonance imaging
     Dosage: OTHER QUANTITY : 7 ML;?OTHER FREQUENCY : ONCE, DURING MRI;?
     Route: 042
     Dates: start: 20210707, end: 20210707
  2. GADAVIST [Suspect]
     Active Substance: GADOBUTROL
     Indication: Scan with contrast

REACTIONS (11)
  - Muscle twitching [None]
  - Feeling abnormal [None]
  - Urine abnormality [None]
  - Head discomfort [None]
  - Ear discomfort [None]
  - Vitreous floaters [None]
  - Vision blurred [None]
  - Dyspnoea [None]
  - Sensory disturbance [None]
  - Tinnitus [None]
  - Cognitive disorder [None]

NARRATIVE: CASE EVENT DATE: 20210707
